FAERS Safety Report 4400666-6 (Version None)
Quarter: 2004Q3

REPORT INFORMATION
  Report Type: 
  Country: None (occurrence: None)
  Receive Date: 20040716
  Receipt Date: 20040716
  Transmission Date: 20050211
  Serious: Yes (Hospitalization)
  Sender: FDA-Public Use
  Company Number: None

PATIENT
  Age: 77 Year
  Sex: Male

DRUGS (2)
  1. GLYBURIDE [Suspect]
     Indication: DIABETES MELLITUS
     Dosage: 5 MG QD
     Dates: start: 20040107, end: 20040202
  2. GLYBURIDE [Suspect]
     Dosage: 2.5 MG QD
     Dates: start: 20041029, end: 20040107

REACTIONS (1)
  - HYPOGLYCAEMIA [None]
